FAERS Safety Report 13232316 (Version 1)
Quarter: 2017Q1

REPORT INFORMATION
  Report Type: Report from Study
  Country: US (occurrence: US)
  Receive Date: 20170214
  Receipt Date: 20170214
  Transmission Date: 20170428
  Serious: Yes (Other)
  Sender: FDA-Public Use
  Company Number: US-GILEAD-2017-0257530

PATIENT
  Age: 46 Year
  Sex: Female

DRUGS (5)
  1. ISENTRESS [Concomitant]
     Active Substance: RALTEGRAVIR POTASSIUM
  2. NORVIR [Concomitant]
     Active Substance: RITONAVIR
  3. LEDIPASVIR/SOFOSBUVIR [Suspect]
     Active Substance: LEDIPASVIR\SOFOSBUVIR
     Indication: CHRONIC HEPATITIS C
     Dosage: 1 DF, QD
     Route: 048
     Dates: start: 20150501, end: 20150801
  4. REYATAZ [Concomitant]
     Active Substance: ATAZANAVIR SULFATE
  5. VIREAD [Concomitant]
     Active Substance: TENOFOVIR DISOPROXIL FUMARATE
     Indication: HIV INFECTION
     Route: 065

REACTIONS (14)
  - Loss of consciousness [Recovered/Resolved]
  - Hallucinations, mixed [Unknown]
  - Walking aid user [Not Recovered/Not Resolved]
  - Paranoia [Unknown]
  - Amnesia [Unknown]
  - Insomnia [Unknown]
  - Cognitive disorder [Unknown]
  - Personality change [Unknown]
  - Fall [Recovered/Resolved]
  - Fine motor skill dysfunction [Unknown]
  - Arthralgia [Unknown]
  - Reading disorder [Unknown]
  - Dysarthria [Unknown]
  - Anger [Unknown]

NARRATIVE: CASE EVENT DATE: 201507
